FAERS Safety Report 16550582 (Version 1)
Quarter: 2019Q3

REPORT INFORMATION
  Report Type: Spontaneous
  Country: US (occurrence: US)
  Receive Date: 20190528
  Receipt Date: 20190528
  Transmission Date: 20191004
  Serious: No
  Sender: FDA-Public Use
  Company Number: None

PATIENT
  Age: 80 Year
  Sex: Male

DRUGS (2)
  1. MYCOPHENOLATE 500MG [Concomitant]
     Active Substance: MYCOPHENOLIC ACID
  2. PROGRAF [Suspect]
     Active Substance: TACROLIMUS\TACROLIMUS ANHYDROUS
     Dates: start: 201805

REACTIONS (1)
  - Sepsis [None]

NARRATIVE: CASE EVENT DATE: 20190528
